FAERS Safety Report 10496354 (Version 2)
Quarter: 2014Q4

REPORT INFORMATION
  Report Type: Report from Study
  Country: US (occurrence: US)
  Receive Date: 20141003
  Receipt Date: 20141013
  Transmission Date: 20150528
  Serious: Yes (Death, Hospitalization, Other)
  Sender: FDA-Public Use
  Company Number: US-ACTELION-A-US2014-105743

PATIENT
  Age: 74 Year
  Sex: Female

DRUGS (17)
  1. ASA [Concomitant]
     Active Substance: ASPIRIN
  2. DILTIAZEM [Concomitant]
     Active Substance: DILTIAZEM
  3. FUROSEMIDE. [Concomitant]
     Active Substance: FUROSEMIDE
  4. LEVAQUIN [Concomitant]
     Active Substance: LEVOFLOXACIN
  5. COZAAR [Concomitant]
     Active Substance: LOSARTAN POTASSIUM
  6. NEXIUM [Concomitant]
     Active Substance: ESOMEPRAZOLE MAGNESIUM
  7. VENLAFAXINE [Concomitant]
     Active Substance: VENLAFAXINE HYDROCHLORIDE
  8. XANAX [Concomitant]
     Active Substance: ALPRAZOLAM
  9. MIRALAX [Concomitant]
     Active Substance: POLYETHYLENE GLYCOL 3350
  10. TRACLEER [Suspect]
     Active Substance: BOSENTAN\BOSENTAN MONOHYDRATE
     Indication: PULMONARY ARTERIAL HYPERTENSION
     Dosage: UNK
     Route: 048
     Dates: end: 20140914
  11. PREDNISONE. [Concomitant]
     Active Substance: PREDNISONE
  12. SILDENAFIL. [Concomitant]
     Active Substance: SILDENAFIL
  13. ELAVIL [Concomitant]
     Active Substance: AMITRIPTYLINE HYDROCHLORIDE
  14. SYMBICORT [Concomitant]
     Active Substance: BUDESONIDE\FORMOTEROL FUMARATE DIHYDRATE
  15. OXYCODONE [Concomitant]
     Active Substance: OXYCODONE
  16. BUPROPION [Concomitant]
     Active Substance: BUPROPION
  17. ZYRTEC [Concomitant]
     Active Substance: CETIRIZINE HYDROCHLORIDE

REACTIONS (6)
  - Cardiac arrest [Fatal]
  - Aspiration [Unknown]
  - Pulmonary arterial hypertension [Fatal]
  - Hip fracture [Fatal]
  - Subdural haematoma [Unknown]
  - Fall [Fatal]

NARRATIVE: CASE EVENT DATE: 20120229
